FAERS Safety Report 7819454-3 (Version None)
Quarter: 2011Q4

REPORT INFORMATION
  Report Type: 
  Country: None (occurrence: None)
  Receive Date: 20111018
  Receipt Date: 20110215
  Transmission Date: 20120403
  Serious: No
  Sender: FDA-Public Use
  Company Number: US-ASTRAZENECA-2011SE08794

PATIENT
  Age: 40 Year
  Sex: Female
  Weight: 49.9 kg

DRUGS (2)
  1. ALBUTEROL [Concomitant]
  2. SYMBICORT [Suspect]
     Indication: DYSPNOEA
     Dosage: TOTAL DAILY DOSE: 320 MCG; BID
     Route: 055
     Dates: start: 20080101

REACTIONS (4)
  - DYSPNOEA [None]
  - DRUG DOSE OMISSION [None]
  - FEELING ABNORMAL [None]
  - LUNG DISORDER [None]
